FAERS Safety Report 21437462 (Version 2)
Quarter: 2025Q3

REPORT INFORMATION
  Report Type: Spontaneous
  Country: US (occurrence: US)
  Receive Date: 20221011
  Receipt Date: 20250806
  Transmission Date: 20251020
  Serious: Yes (Other)
  Sender: AUROBINDO
  Company Number: US-AUROBINDO-AUR-APL-2022-040556

PATIENT
  Age: 56 Year
  Sex: Female

DRUGS (6)
  1. SERTRALINE [Suspect]
     Active Substance: SERTRALINE HYDROCHLORIDE
     Indication: Major depression
     Dosage: 250 MILLIGRAM, ONCE A DAY
     Route: 048
  2. TOPIRAMATE [Suspect]
     Active Substance: TOPIRAMATE
     Indication: Generalised tonic-clonic seizure
     Dosage: 75 MILLIGRAM, ONCE A DAY
     Route: 048
  3. DISULFIRAM [Concomitant]
     Active Substance: DISULFIRAM
     Indication: Product used for unknown indication
     Dosage: 250 MILLIGRAM, ONCE A DAY
     Route: 048
  4. NALTREXONE [Concomitant]
     Active Substance: NALTREXONE
     Indication: Product used for unknown indication
     Route: 030
  5. THIAMINE [Concomitant]
     Active Substance: THIAMINE
     Indication: Product used for unknown indication
     Route: 048
  6. LEVETIRACETAM [Concomitant]
     Active Substance: LEVETIRACETAM
     Indication: Seizure prophylaxis
     Route: 065

REACTIONS (4)
  - Wernicke^s encephalopathy [Unknown]
  - Vitamin B1 deficiency [Unknown]
  - Weight decreased [Unknown]
  - Drug ineffective [Unknown]
